FAERS Safety Report 8431562-5 (Version None)
Quarter: 2012Q2

REPORT INFORMATION
  Report Type: 
  Country: None (occurrence: None)
  Receive Date: 20120607
  Receipt Date: 20120607
  Transmission Date: 20120825
  Serious: Yes (Hospitalization)
  Sender: FDA-Public Use
  Company Number: None

PATIENT
  Sex: Female
  Weight: 48.5 kg

DRUGS (7)
  1. DIPHENHYDRAMINE HCL [Concomitant]
  2. OXYCONTIN [Concomitant]
  3. ZOLEDRONIC ACID [Suspect]
     Indication: NEUROBLASTOMA
     Dosage: 4 MG IV ON DAY 0
     Route: 042
     Dates: start: 20120604
  4. PROLEUKIN [Suspect]
     Indication: NEUROBLASTOMA
     Dosage: 4.53 MIL UNITS SC D 0-4
     Route: 058
     Dates: start: 20120605
  5. PROLEUKIN [Suspect]
     Indication: NEUROBLASTOMA
     Dosage: 4.53 MIL UNITS SC D 0-4
     Route: 058
     Dates: start: 20120604
  6. CITRACAL D [Concomitant]
  7. ACETAMINOPHEN [Concomitant]

REACTIONS (4)
  - MYALGIA [None]
  - HYPOTENSION [None]
  - TACHYCARDIA [None]
  - PYREXIA [None]
